FAERS Safety Report 24942141 (Version 1)
Quarter: 2025Q1

REPORT INFORMATION
  Report Type: Spontaneous
  Country: NZ (occurrence: NZ)
  Receive Date: 20250207
  Receipt Date: 20250207
  Transmission Date: 20250409
  Serious: Yes (Death)
  Sender: JOHNSON AND JOHNSON
  Company Number: NZ-JNJFOC-20250210191

PATIENT
  Age: 8 Decade
  Sex: Male

DRUGS (2)
  1. REMICADE [Suspect]
     Active Substance: INFLIXIMAB
     Indication: Crohn^s disease
     Route: 041
  2. THIOGUANINE [Suspect]
     Active Substance: THIOGUANINE
     Indication: Crohn^s disease
     Route: 065

REACTIONS (1)
  - Lymphoma [Fatal]
